FAERS Safety Report 12124807 (Version 2)
Quarter: 2016Q1

REPORT INFORMATION
  Report Type: Report from Study
  Country: US (occurrence: US)
  Receive Date: 20160229
  Receipt Date: 20160301
  Transmission Date: 20160526
  Serious: No
  Sender: FDA-Public Use
  Company Number: PHEH2016US004839

PATIENT
  Sex: Female
  Weight: 54.43 kg

DRUGS (1)
  1. EXELON PATCH [Suspect]
     Active Substance: RIVASTIGMINE
     Indication: AMNESIA
     Dosage: PATCH 15 (CM2)
     Route: 062

REACTIONS (2)
  - Application site rash [Unknown]
  - Drug administered at inappropriate site [Unknown]
